FAERS Safety Report 21880092 (Version 1)
Quarter: 2023Q1

REPORT INFORMATION
  Report Type: Report from Study
  Country: US (occurrence: US)
  Receive Date: 20230118
  Receipt Date: 20230118
  Transmission Date: 20230418
  Serious: Yes (Hospitalization)
  Sender: FDA-Public Use
  Company Number: US-MIRM-000689

PATIENT
  Sex: Female

DRUGS (1)
  1. LIVMARLI [Suspect]
     Active Substance: MARALIXIBAT CHLORIDE
     Indication: Product used for unknown indication
     Route: 048
     Dates: start: 202203

REACTIONS (4)
  - Weight decreased [Unknown]
  - Pruritus [Unknown]
  - Insomnia [Unknown]
  - Intracardiac pressure increased [Unknown]

NARRATIVE: CASE EVENT DATE: 20220101
